FAERS Safety Report 18997481 (Version 2)
Quarter: 2022Q2

REPORT INFORMATION
  Report Type: Spontaneous
  Country: GB (occurrence: GB)
  Receive Date: 20210311
  Receipt Date: 20220502
  Transmission Date: 20220721
  Serious: Yes (Other)
  Sender: FDA-Public Use
  Company Number: GB-GLAXOSMITHKLINE-GB2021GSK058746

PATIENT
  Age: 52 Year
  Sex: Female

DRUGS (2)
  1. SUMATRIPTAN [Suspect]
     Active Substance: SUMATRIPTAN
     Indication: Migraine
     Dosage: 100 MG
  2. SUMATRIPTAN [Suspect]
     Active Substance: SUMATRIPTAN
     Dosage: 200 MG, 1D

REACTIONS (14)
  - Angle closure glaucoma [Recovered/Resolved]
  - Headache [Recovered/Resolved]
  - Blindness [Recovered/Resolved]
  - Nausea [Recovered/Resolved]
  - Vomiting [Recovered/Resolved]
  - Tachycardia [Recovered/Resolved]
  - Mydriasis [Recovered/Resolved]
  - Myopia [Recovered/Resolved]
  - Conjunctival hyperaemia [Recovered/Resolved]
  - Corneal oedema [Recovered/Resolved]
  - Flat anterior chamber of eye [Recovered/Resolved]
  - Cataract nuclear [Recovered/Resolved]
  - Restlessness [Recovered/Resolved]
  - Photophobia [Recovered/Resolved]
